FAERS Safety Report 8166144-6 (Version None)
Quarter: 2012Q1

REPORT INFORMATION
  Report Type: 
  Country: None (occurrence: None)
  Receive Date: 20120227
  Receipt Date: 20110525
  Transmission Date: 20120608
  Serious: No
  Sender: FDA-Public Use
  Company Number: US-MYLANLABS-2011S1007301

PATIENT
  Age: 26 Year
  Sex: Female

DRUGS (3)
  1. AMNESTEEM [Suspect]
     Route: 048
     Dates: start: 20110301, end: 20110315
  2. AMNESTEEM [Suspect]
     Indication: ACNE
     Route: 048
     Dates: start: 20101216, end: 20110201
  3. CLARAVIS [Suspect]
     Indication: ACNE
     Route: 048
     Dates: start: 20101216, end: 20110201

REACTIONS (3)
  - MYALGIA [None]
  - PROTEIN TOTAL DECREASED [None]
  - ARTHRALGIA [None]
